FAERS Safety Report 9235479 (Version 1)
Quarter: 2013Q2

REPORT INFORMATION
  Report Type: Spontaneous
  Country: US (occurrence: None)
  Receive Date: 20130416
  Receipt Date: 20130416
  Transmission Date: 20140414
  Serious: Yes (Hospitalization)
  Sender: FDA-Public Use
  Company Number: None

PATIENT
  Age: 67 Year
  Sex: Male
  Weight: 70 kg

DRUGS (1)
  1. CETUXIMAB (ERBITUX) (714692) [Suspect]
     Dosage: DOSE# 4 + 5 DUE ON 4/2/13 AND 4/9/13

REACTIONS (5)
  - Mucosal inflammation [None]
  - Dehydration [None]
  - Confusional state [None]
  - Blood sodium increased [None]
  - Laboratory test abnormal [None]
